FAERS Safety Report 14248344 (Version 1)
Quarter: 2017Q4

REPORT INFORMATION
  Report Type: Spontaneous
  Country: US (occurrence: US)
  Receive Date: 20171202
  Receipt Date: 20171202
  Transmission Date: 20180321
  Serious: Yes (Disabling, Other)
  Sender: FDA-Public Use
  Company Number: None

PATIENT
  Age: 35 Year
  Sex: Female
  Weight: 81 kg

DRUGS (2)
  1. TRIAMCINOLONE ACETONIDE. [Suspect]
     Active Substance: TRIAMCINOLONE ACETONIDE
     Indication: ECZEMA
     Route: 062
     Dates: start: 20170602, end: 20170608
  2. CITALOPRAM [Concomitant]
     Active Substance: CITALOPRAM HYDROBROMIDE

REACTIONS (15)
  - Alopecia [None]
  - Scratch [None]
  - Pain [None]
  - Secretion discharge [None]
  - Pruritus generalised [None]
  - Insomnia [None]
  - Gait disturbance [None]
  - Loss of personal independence in daily activities [None]
  - Neuralgia [None]
  - Chills [None]
  - Hypertrichosis [None]
  - Rash [None]
  - Skin odour abnormal [None]
  - Nasopharyngitis [None]
  - Skin exfoliation [None]

NARRATIVE: CASE EVENT DATE: 20170610
